FAERS Safety Report 7163226-2 (Version None)
Quarter: 2010Q4

REPORT INFORMATION
  Report Type: 
  Country: None (occurrence: None)
  Receive Date: 20101215
  Receipt Date: 20100315
  Transmission Date: 20110411
  Serious: Yes (Hospitalization, Other)
  Sender: FDA-Public Use
  Company Number: US-PFIZER INC-2010033955

PATIENT
  Sex: Male
  Weight: 104.31 kg

DRUGS (4)
  1. LYRICA [Suspect]
     Indication: NEUROPATHY PERIPHERAL
     Dosage: 25 MG, 2X/DAY
     Route: 048
     Dates: start: 20100302
  2. LYRICA [Suspect]
     Indication: PAIN IN EXTREMITY
  3. LASIX [Concomitant]
     Indication: OEDEMA PERIPHERAL
     Dosage: UNK
  4. LEXAPRO [Concomitant]
     Indication: RENAL CELL CARCINOMA
     Dosage: UNK

REACTIONS (5)
  - BLOOD CREATININE INCREASED [None]
  - CARDIAC ENZYMES INCREASED [None]
  - CHEST PAIN [None]
  - MYOCARDIAL INFARCTION [None]
  - SOMNOLENCE [None]
